FAERS Safety Report 8224093-9 (Version None)
Quarter: 2012Q1

REPORT INFORMATION
  Report Type: 
  Country: None (occurrence: None)
  Receive Date: 20120307
  Receipt Date: 20110401
  Transmission Date: 20120608
  Serious: No
  Sender: FDA-Public Use
  Company Number: PHHY2011US27415

PATIENT
  Age: 54 Year
  Sex: Female

DRUGS (12)
  1. OXYCODONE HCL [Concomitant]
  2. WELLBUTRIN [Concomitant]
  3. AFINITOR [Suspect]
     Indication: RENAL CELL CARCINOMA
     Dosage: 10 MG, QD, ORAL
     Route: 048
     Dates: start: 20110204
  4. VIVELLE [Concomitant]
  5. ACETAMINOPHEN [Concomitant]
  6. PROMETRIUM [Concomitant]
  7. MACROBID [Concomitant]
  8. LORAZEPAM [Concomitant]
  9. VITAMIN D [Concomitant]
  10. AMBIEN [Concomitant]
  11. PANCREAZE [Concomitant]
  12. VITAMIN B (NO INGREDIENTS/SUBSTANCES) [Concomitant]

REACTIONS (3)
  - ABDOMINAL DISCOMFORT [None]
  - STOMATITIS [None]
  - FATIGUE [None]
